FAERS Safety Report 12233931 (Version 1)
Quarter: 2016Q2

REPORT INFORMATION
  Report Type: Spontaneous
  Country: US (occurrence: None)
  Receive Date: 20160401
  Receipt Date: 20160401
  Transmission Date: 20160815
  Serious: No
  Sender: FDA-Public Use
  Company Number: None

PATIENT
  Age: 79 Year
  Sex: Male

DRUGS (19)
  1. VALSARTAN. [Concomitant]
     Active Substance: VALSARTAN
  2. BICALUTAMIDE. [Concomitant]
     Active Substance: BICALUTAMIDE
  3. ATENOL [Concomitant]
     Active Substance: ATENOLOL
  4. CYCLOBENSAPR [Concomitant]
  5. ONETOUCH [Concomitant]
  6. OXYCONTIN [Concomitant]
     Active Substance: OXYCODONE HYDROCHLORIDE
  7. MAGNESIUM [Concomitant]
     Active Substance: MAGNESIUM
  8. OXYCODONE AND ACETAMINOPHEN [Concomitant]
     Active Substance: ACETAMINOPHEN\OXYCODONE HYDROCHLORIDE
  9. FENTANYL. [Concomitant]
     Active Substance: FENTANYL
  10. CARVEDILOL. [Concomitant]
     Active Substance: CARVEDILOL
  11. DOCQLACE [Concomitant]
     Active Substance: DOCUSATE SODIUM
  12. GLYBURIDE. [Concomitant]
     Active Substance: GLYBURIDE
  13. ZYTIGA [Suspect]
     Active Substance: ABIRATERONE ACETATE
     Indication: PROSTATE CANCER
     Dosage: 1000 MG SID PO
     Route: 048
     Dates: start: 20160317, end: 201603
  14. PREDNISONE. [Concomitant]
     Active Substance: PREDNISONE
  15. NIFEDICAL XL [Concomitant]
     Active Substance: NIFEDIPINE
  16. TIZANIDINE. [Concomitant]
     Active Substance: TIZANIDINE
  17. CALCITROL [Concomitant]
     Active Substance: CALCITRIOL
  18. VITAMIN D [Concomitant]
     Active Substance: CHOLECALCIFEROL
  19. TOUJEO SOLO [Concomitant]

REACTIONS (2)
  - Loss of consciousness [None]
  - Abasia [None]
